FAERS Safety Report 9238751 (Version 1)
Quarter: 2013Q1

REPORT INFORMATION
  Report Type: Spontaneous
  Country: US (occurrence: None)
  Receive Date: 20121101
  Receipt Date: 20121101
  Transmission Date: 20140127
  Serious: Yes (Other)
  Sender: FDA-Public Use
  Company Number: 356770

PATIENT
  Age: 69 Year
  Sex: Female
  Weight: 61.2 kg

DRUGS (1)
  1. VAGIFEM [Suspect]
     Indication: DYSPAREUNIA
     Route: 067
     Dates: start: 201205, end: 20120505

REACTIONS (6)
  - Vaginal haemorrhage [None]
  - Genital cyst [None]
  - Extrasystoles [None]
  - Alopecia [None]
  - Vaginal discharge [None]
  - Headache [None]
